FAERS Safety Report 9203982 (Version 1)
Quarter: 2013Q2

REPORT INFORMATION
  Report Type: Spontaneous
  Country: US (occurrence: US)
  Receive Date: 20130402
  Receipt Date: 20130402
  Transmission Date: 20140414
  Serious: No
  Sender: FDA-Public Use
  Company Number: US-009507513-1304USA000575

PATIENT
  Sex: 0

DRUGS (1)
  1. INTEGRILIN [Suspect]
     Dosage: UNK
     Dates: start: 20130326

REACTIONS (3)
  - Ischaemia [Unknown]
  - Thrombosis [Unknown]
  - Drug ineffective [Unknown]
